FAERS Safety Report 16415173 (Version 5)
Quarter: 2019Q3

REPORT INFORMATION
  Report Type: Spontaneous
  Country: US (occurrence: US)
  Receive Date: 20190611
  Receipt Date: 20190724
  Transmission Date: 20191004
  Serious: Yes (Hospitalization)
  Sender: FDA-Public Use
  Company Number: US-PFIZER INC-2019245224

PATIENT
  Age: 63 Year
  Sex: Female
  Weight: 77 kg

DRUGS (2)
  1. XELJANZ [Suspect]
     Active Substance: TOFACITINIB CITRATE
     Indication: COLITIS
     Dosage: 10 MG, 2X/DAY
     Dates: start: 20190530, end: 201907
  2. XELJANZ [Suspect]
     Active Substance: TOFACITINIB CITRATE
     Indication: COLITIS ULCERATIVE

REACTIONS (4)
  - Dizziness [Unknown]
  - Joint swelling [Recovered/Resolved]
  - Drug ineffective [Unknown]
  - Dizziness postural [Not Recovered/Not Resolved]

NARRATIVE: CASE EVENT DATE: 201905
